FAERS Safety Report 6786639-7 (Version None)
Quarter: 2010Q2

REPORT INFORMATION
  Report Type: 
  Country: None (occurrence: None)
  Receive Date: 20100623
  Receipt Date: 20100616
  Transmission Date: 20101027
  Serious: Yes (Life-Threatening, Hospitalization, Other)
  Sender: FDA-Public Use
  Company Number: FR-BRISTOL-MYERS SQUIBB COMPANY-15153331

PATIENT
  Age: 55 Year
  Sex: Female

DRUGS (4)
  1. SUSTIVA [Suspect]
     Indication: HIV INFECTION
     Route: 048
  2. ATRIPLA [Suspect]
     Indication: HIV INFECTION
     Dosage: 1DF=(600MG/200MG/245MG)
     Route: 048
     Dates: start: 20100101, end: 20100420
  3. TRUVADA [Suspect]
     Indication: HIV INFECTION
     Dates: start: 20091101, end: 20100101
  4. COZAAR [Concomitant]
     Indication: HYPERTENSION
     Dates: start: 20090101

REACTIONS (3)
  - HEPATIC ENCEPHALOPATHY [None]
  - HEPATITIS FULMINANT [None]
  - STREPTOCOCCAL INFECTION [None]
